FAERS Safety Report 21814966 (Version 1)
Quarter: 2023Q1

REPORT INFORMATION
  Report Type: Spontaneous
  Country: GB (occurrence: GB)
  Receive Date: 20230104
  Receipt Date: 20230104
  Transmission Date: 20230418
  Serious: Yes (Other)
  Sender: FDA-Public Use
  Company Number: GB-MHRA-EMIS-3089-dfbefefa-491b-4ad3-9b1a-7755e5fd0cb0

PATIENT
  Age: 65 Year
  Sex: Male
  Weight: 85.8 kg

DRUGS (4)
  1. SIMVASTATIN [Suspect]
     Active Substance: SIMVASTATIN
     Indication: Transient ischaemic attack
     Dosage: 20 MILLIGRAM, ONCE A DAY (AT NIGHT)
     Route: 065
     Dates: start: 20221101
  2. ATORVASTATIN [Concomitant]
     Active Substance: ATORVASTATIN
     Indication: Product used for unknown indication
     Dosage: 10 MILLIGRAM, ONCE A DAY
     Route: 065
     Dates: start: 20221121
  3. LANSOPRAZOLE [Concomitant]
     Active Substance: LANSOPRAZOLE
     Indication: Product used for unknown indication
     Dosage: 15 MILLIGRAM, ONCE A DAY (EACH MORNING WHILE ON STEROIDS)
     Route: 065
     Dates: start: 20220921
  4. Supemtek [Concomitant]
     Indication: Influenza immunisation
     Dosage: UNK (IMMEDIATELY)
     Route: 065
     Dates: start: 20221114

REACTIONS (1)
  - Muscle spasms [Recovered/Resolved]
